FAERS Safety Report 14377928 (Version 1)
Quarter: 2018Q1

REPORT INFORMATION
  Report Type: Spontaneous
  Country: DE (occurrence: DE)
  Receive Date: 20180111
  Receipt Date: 20180111
  Transmission Date: 20180509
  Serious: Yes (Hospitalization)
  Sender: FDA-Public Use
  Company Number: DE-TEVA-818340GER

PATIENT
  Age: 49 Year
  Sex: Female
  Weight: 100 kg

DRUGS (3)
  1. CYCLOPHOSPHAMID [Suspect]
     Active Substance: CYCLOPHOSPHAMIDE
     Indication: BREAST CANCER FEMALE
     Dosage: 1200 MILLIGRAM DAILY; LAST DOSE PRIOR TO SAE: UNKNOWN
     Route: 042
     Dates: start: 20170913
  2. LONQUEX [Concomitant]
     Active Substance: LIPEGFILGRASTIM
     Indication: PROPHYLAXIS
     Dosage: 6 MILLIGRAM DAILY; LAST DOSE PRIOR TO SAE: 12-OCT-2017
     Route: 058
     Dates: start: 20170914
  3. EPIRUBICIN [Suspect]
     Active Substance: EPIRUBICIN
     Indication: BREAST CANCER FEMALE
     Dosage: 180 MILLIGRAM DAILY; LAST DOSE PRIOR TO SAE: UNKNOWN
     Route: 042
     Dates: start: 20170913

REACTIONS (1)
  - Gastritis [Recovered/Resolved]

NARRATIVE: CASE EVENT DATE: 20171018
